FAERS Safety Report 9788301 (Version 1)
Quarter: 2013Q4

REPORT INFORMATION
  Report Type: Spontaneous
  Country: US (occurrence: US)
  Receive Date: 20131230
  Receipt Date: 20131230
  Transmission Date: 20140711
  Serious: No
  Sender: FDA-Public Use
  Company Number: US-PFIZER INC-2013367804

PATIENT
  Age: 81 Year
  Sex: Female

DRUGS (1)
  1. SUTENT [Suspect]
     Indication: RENAL CANCER
     Dosage: 25 MG ALTERNATING WITH 50 MG
     Route: 048
     Dates: start: 20130822

REACTIONS (6)
  - Oral pain [Unknown]
  - Glossodynia [Unknown]
  - Eating disorder [Unknown]
  - Fatigue [Unknown]
  - Rash pruritic [Unknown]
  - Hypertension [Unknown]
